FAERS Safety Report 22063499 (Version 1)
Quarter: 2023Q1

REPORT INFORMATION
  Report Type: Spontaneous
  Country: CA (occurrence: CA)
  Receive Date: 20230306
  Receipt Date: 20230306
  Transmission Date: 20230417
  Serious: Yes (Other)
  Sender: FDA-Public Use
  Company Number: CA-TAKEDA-2023TUS022673

PATIENT
  Age: 65 Year
  Sex: Female

DRUGS (1)
  1. BRIGATINIB [Suspect]
     Active Substance: BRIGATINIB
     Indication: Metastases to meninges
     Dosage: UNK
     Route: 065

REACTIONS (5)
  - Metastases to meninges [Unknown]
  - Hallucination [Unknown]
  - Behaviour disorder [Unknown]
  - Paranoia [Unknown]
  - Product use in unapproved indication [Unknown]
